FAERS Safety Report 25564329 (Version 1)
Quarter: 2025Q3

REPORT INFORMATION
  Report Type: Spontaneous
  Country: EU (occurrence: EU)
  Receive Date: 20250716
  Receipt Date: 20250716
  Transmission Date: 20251020
  Serious: Yes (Other)
  Sender: TEVA
  Company Number: None

PATIENT
  Age: 72 Year
  Sex: Female

DRUGS (2)
  1. TICAGRELOR [Interacting]
     Active Substance: TICAGRELOR
     Indication: Stent placement
     Dosage: TICAGRELOR (8461A)
     Route: 048
     Dates: start: 20250606
  2. ASPIRIN [Interacting]
     Active Substance: ASPIRIN
     Indication: Cardiovascular event prophylaxis
     Dosage: GASTRO-RESISTANT TABLETS EFG
     Route: 048
     Dates: start: 20250606

REACTIONS (1)
  - Subcutaneous haematoma [Recovering/Resolving]

NARRATIVE: CASE EVENT DATE: 20250620
